FAERS Safety Report 22632133 (Version 2)
Quarter: 2023Q4

REPORT INFORMATION
  Report Type: Report from Study
  Country: EG (occurrence: EG)
  Receive Date: 20230623
  Receipt Date: 20231107
  Transmission Date: 20240110
  Serious: Yes (Disabling, Other)
  Sender: FDA-Public Use
  Company Number: EG-002147023-NVSC2023EG140388

PATIENT
  Age: 41 Year
  Sex: Female

DRUGS (3)
  1. AFINITOR [Suspect]
     Active Substance: EVEROLIMUS
     Indication: Breast cancer metastatic
     Dosage: 1 DOSAGE FORM, QD
     Route: 048
     Dates: start: 20230520
  2. AFINITOR [Suspect]
     Active Substance: EVEROLIMUS
     Dosage: 1 DOSAGE FORM, QD
     Route: 048
     Dates: start: 202306, end: 202308
  3. GOSERELIN [Concomitant]
     Active Substance: GOSERELIN
     Indication: Menstrual disorder
     Dosage: UNK, Q3MO (EVERY 3 MONTHS)
     Route: 065

REACTIONS (7)
  - Metastasis [Recovering/Resolving]
  - Hypocalcaemia [Not Recovered/Not Resolved]
  - Decreased immune responsiveness [Not Recovered/Not Resolved]
  - Neuropathy peripheral [Not Recovered/Not Resolved]
  - Movement disorder [Unknown]
  - Back pain [Unknown]
  - Drug ineffective [Not Recovered/Not Resolved]

NARRATIVE: CASE EVENT DATE: 20230601
